FAERS Safety Report 22691741 (Version 2)
Quarter: 2024Q1

REPORT INFORMATION
  Report Type: Spontaneous
  Country: US (occurrence: US)
  Receive Date: 20230711
  Receipt Date: 20240102
  Transmission Date: 20240410
  Serious: No
  Sender: FDA-Public Use
  Company Number: US-SA-SAC20230710001351

PATIENT
  Age: 32 Year
  Sex: Male
  Weight: 87.08 kg

DRUGS (2)
  1. ALDURAZYME [Suspect]
     Active Substance: LARONIDASE
     Indication: Immunodeficiency
     Dosage: 43.5 MG, QW
     Route: 042
     Dates: start: 202202
  2. ALDURAZYME [Suspect]
     Active Substance: LARONIDASE
     Indication: Skin infection

REACTIONS (3)
  - Weight increased [Unknown]
  - Influenza [Unknown]
  - Product use in unapproved indication [Unknown]

NARRATIVE: CASE EVENT DATE: 20220201
